FAERS Safety Report 7367889-8 (Version None)
Quarter: 2011Q1

REPORT INFORMATION
  Report Type: 
  Country: None (occurrence: None)
  Receive Date: 20110322
  Receipt Date: 20110317
  Transmission Date: 20110831
  Serious: Yes (Other)
  Sender: FDA-Public Use
  Company Number: DZ-ABBOTT-11P-003-0712984-00

PATIENT
  Age: 30 Year
  Sex: Female

DRUGS (1)
  1. SEVOFLURANE [Suspect]
     Indication: PRODUCT USED FOR UNKNOWN INDICATION

REACTIONS (1)
  - ABORTION SPONTANEOUS [None]
